FAERS Safety Report 23040872 (Version 1)
Quarter: 2023Q4

REPORT INFORMATION
  Report Type: Spontaneous
  Country: US (occurrence: US)
  Receive Date: 20231006
  Receipt Date: 20231006
  Transmission Date: 20240109
  Serious: Yes (Other)
  Sender: FDA-Public Use
  Company Number: US-PPDUS-2023ST003425

PATIENT
  Age: 53 Year
  Sex: Female

DRUGS (5)
  1. ORSERDU [Suspect]
     Active Substance: ELACESTRANT
     Indication: Product used for unknown indication
     Dosage: 345MG ONCE DAILY.
     Route: 048
  2. CALCIUM CARBONATE [Concomitant]
     Active Substance: CALCIUM CARBONATE
  3. LETROZOLE [Concomitant]
     Active Substance: LETROZOLE
  4. TYLENOL [Concomitant]
     Active Substance: ACETAMINOPHEN
  5. VERZENIO [Concomitant]
     Active Substance: ABEMACICLIB

REACTIONS (2)
  - Disease progression [Unknown]
  - Tumour marker increased [Unknown]
